FAERS Safety Report 11221079 (Version 6)
Quarter: 2020Q3

REPORT INFORMATION
  Report Type: Other
  Country: CA (occurrence: CA)
  Receive Date: 20150626
  Receipt Date: 20200730
  Transmission Date: 20201102
  Serious: Yes (Other)
  Sender: FDA-Public Use
  Company Number: CA-ROCHE-1462845

PATIENT
  Age: 59 Year
  Sex: Female
  Weight: 82.6 kg

DRUGS (14)
  1. TYLENOL [Concomitant]
     Active Substance: ACETAMINOPHEN
     Indication: PREMEDICATION
     Route: 048
     Dates: start: 20141023
  2. NEXIUM [Concomitant]
     Active Substance: ESOMEPRAZOLE MAGNESIUM
  3. REACTINE (CANADA) [Concomitant]
     Active Substance: CETIRIZINE HYDROCHLORIDE
     Indication: RASH
  4. PREDNISONE. [Concomitant]
     Active Substance: PREDNISONE
  5. RITUXAN [Suspect]
     Active Substance: RITUXIMAB
     Indication: RHEUMATOID ARTHRITIS
     Route: 042
     Dates: start: 20140408
  6. THYROXINE [Concomitant]
     Active Substance: LEVOTHYROXINE
  7. ATIVAN [Concomitant]
     Active Substance: LORAZEPAM
  8. OMEGA 3 [Concomitant]
     Active Substance: OMEGA-3 FATTY ACIDS
  9. RITUXAN [Suspect]
     Active Substance: RITUXIMAB
     Route: 042
     Dates: start: 20140423
  10. EZETROL [Concomitant]
     Active Substance: EZETIMIBE
  11. SUBLINOX [Concomitant]
     Active Substance: ZOLPIDEM TARTRATE
  12. SOLU?MEDROL [Concomitant]
     Active Substance: METHYLPREDNISOLONE SODIUM SUCCINATE
     Indication: PREMEDICATION
     Route: 042
     Dates: start: 20141023
  13. FOLIC ACID. [Concomitant]
     Active Substance: FOLIC ACID
  14. BENADRYL [Concomitant]
     Active Substance: DIPHENHYDRAMINE HYDROCHLORIDE
     Indication: PREMEDICATION
     Route: 048
     Dates: start: 20141023

REACTIONS (25)
  - Ill-defined disorder [Unknown]
  - Dyspnoea [Recovered/Resolved]
  - Chest discomfort [Recovered/Resolved]
  - Arthralgia [Unknown]
  - Arthropathy [Not Recovered/Not Resolved]
  - Kidney infection [Recovered/Resolved]
  - Rheumatoid arthritis [Not Recovered/Not Resolved]
  - Throat irritation [Recovered/Resolved]
  - Sinus congestion [Recovered/Resolved]
  - Skin tightness [Recovered/Resolved]
  - Injection site pain [Recovered/Resolved]
  - Blood pressure diastolic decreased [Unknown]
  - Osteoarthritis [Not Recovered/Not Resolved]
  - Sinusitis [Unknown]
  - Blood pressure fluctuation [Unknown]
  - Blood pressure systolic increased [Unknown]
  - Blood disorder [Unknown]
  - Weight increased [Not Recovered/Not Resolved]
  - Oxygen saturation decreased [Unknown]
  - Fluid retention [Recovered/Resolved]
  - Throat tightness [Recovered/Resolved]
  - Tongue coated [Recovered/Resolved]
  - Cystitis [Recovered/Resolved]
  - Infusion related reaction [Unknown]
  - Eye infection [Not Recovered/Not Resolved]

NARRATIVE: CASE EVENT DATE: 20141023
